FAERS Safety Report 24217741 (Version 1)
Quarter: 2024Q3

REPORT INFORMATION
  Report Type: Spontaneous
  Country: SE (occurrence: SE)
  Receive Date: 20240816
  Receipt Date: 20240816
  Transmission Date: 20241016
  Serious: Yes (Hospitalization)
  Sender: TEVA
  Company Number: None

PATIENT
  Age: 7 Day
  Sex: Male
  Weight: 3 kg

DRUGS (3)
  1. VENLAFAXINE [Suspect]
     Active Substance: VENLAFAXINE HYDROCHLORIDE
     Indication: Product used for unknown indication
     Dosage: 75 MG TWICE A DAY AND 37.5 MG TWICE A DAY FOR A TOTAL OF 225 MG
     Route: 063
     Dates: start: 20240517, end: 20240520
  2. VENLAFAXINE [Suspect]
     Active Substance: VENLAFAXINE HYDROCHLORIDE
     Indication: Product used for unknown indication
     Route: 063
     Dates: start: 20240517, end: 20240520
  3. ESOMEPRAZOLE [Concomitant]
     Active Substance: ESOMEPRAZOLE
     Indication: Product used for unknown indication
     Dosage: 1 TABLET/DAY
     Route: 063
     Dates: start: 20240510, end: 20240520

REACTIONS (3)
  - Hypotonia [Recovered/Resolved]
  - Exposure via breast milk [Recovered/Resolved]
  - Fatigue [Recovered/Resolved]

NARRATIVE: CASE EVENT DATE: 20240517
